FAERS Safety Report 7328925-8 (Version None)
Quarter: 2011Q1

REPORT INFORMATION
  Report Type: 
  Country: None (occurrence: None)
  Receive Date: 20110303
  Receipt Date: 20110228
  Transmission Date: 20110831
  Serious: Yes (Life-Threatening, Hospitalization, Disabling)
  Sender: FDA-Public Use
  Company Number: US-B.I. PHARMACEUTICALS,INC./RIDGEFIELD-2011-BP-05530BP

PATIENT
  Age: 71 Year
  Sex: Female

DRUGS (6)
  1. AGGRENOX [Suspect]
     Indication: CEREBROVASCULAR ACCIDENT
     Dosage: 25/200MG; 1 CAPSULE BID
     Route: 048
     Dates: start: 20090101, end: 20100701
  2. AGGRENOX [Suspect]
     Dosage: 25/200MG; 1 CAPSULE BID
     Route: 048
     Dates: start: 20101001
  3. LIPITOR [Concomitant]
     Indication: BLOOD CHOLESTEROL INCREASED
  4. VITAMIN D [Concomitant]
     Indication: PROPHYLAXIS
  5. PROZAC [Concomitant]
     Indication: DEPRESSION
  6. THYROID TAB [Concomitant]
     Indication: HYPOTHYROIDISM

REACTIONS (4)
  - HEMIPARESIS [None]
  - HIP FRACTURE [None]
  - PRURITUS [None]
  - CEREBROVASCULAR ACCIDENT [None]
